FAERS Safety Report 6615110-8 (Version None)
Quarter: 2010Q1

REPORT INFORMATION
  Report Type: 
  Country: None (occurrence: None)
  Receive Date: 20100305
  Receipt Date: 20100223
  Transmission Date: 20100710
  Serious: Yes (Hospitalization)
  Sender: FDA-Public Use
  Company Number: PL-PFIZER INC-2010023892

PATIENT
  Age: 76 Year
  Sex: Female

DRUGS (11)
  1. FLUCONAZOLE [Suspect]
     Dosage: 150 MG, UNK
     Route: 042
  2. METHOTREXATE [Suspect]
  3. GENTAMICIN [Suspect]
     Dosage: 80 MG, 2X/DAY
     Route: 042
  4. AMOXICILLIN TRIHYDRATE/CLAVULANIC ACID [Suspect]
     Dosage: 1200 MG, 2X/DAY
     Route: 042
  5. NEUPOGEN [Suspect]
     Dosage: 0.48 MG, 1X/DAY
     Route: 058
  6. DEXAMETHASONE [Suspect]
     Dosage: 4 MG, 2X/DAY
     Route: 042
  7. SOTALOL [Suspect]
     Dosage: 80 MG, 2X/DAY
  8. TELMISARTAN [Suspect]
     Dosage: 80 MG, 1X/DAY
  9. HYDROCHLOROTHIAZIDE [Suspect]
     Dosage: 25 MG, 1X/DAY
  10. METFORMIN [Suspect]
     Dosage: 500 MG, 3X/DAY
  11. GLICLAZIDE [Suspect]
     Dosage: 1 TABLET QD

REACTIONS (3)
  - ACUTE HEPATIC FAILURE [None]
  - DRUG INEFFECTIVE [None]
  - PANCYTOPENIA [None]
